FAERS Safety Report 6593079-2 (Version None)
Quarter: 2010Q1

REPORT INFORMATION
  Report Type: 
  Country: None (occurrence: None)
  Receive Date: 20100218
  Receipt Date: 20100218
  Transmission Date: 20100710
  Serious: No
  Sender: FDA-Public Use
  Company Number: None

PATIENT
  Age: 21 Year
  Sex: Male
  Weight: 107.9561 kg

DRUGS (2)
  1. ADDERALL XR 30 [Suspect]
     Dosage: ONE QAM DAILY PO (2 MONTHS IN SUMMER)
     Route: 048
  2. ADDERALL XR 10 [Suspect]
     Dosage: ONE QAM DAILY PO
     Route: 048

REACTIONS (3)
  - ATTENTION DEFICIT/HYPERACTIVITY DISORDER [None]
  - CONDITION AGGRAVATED [None]
  - PRODUCT SUBSTITUTION ISSUE [None]
